FAERS Safety Report 19747515 (Version 1)
Quarter: 2021Q3

REPORT INFORMATION
  Report Type: Spontaneous
  Country: US (occurrence: US)
  Receive Date: 20210825
  Receipt Date: 20210825
  Transmission Date: 20211014
  Serious: No
  Sender: FDA-Public Use
  Company Number: US-SUNOVION-2021SUN003110

PATIENT
  Sex: Male
  Weight: 106.58 kg

DRUGS (2)
  1. LONHALA MAGNAIR [Suspect]
     Active Substance: GLYCOPYRROLATE
     Indication: ASTHMA
     Dosage: 25 ?G/1 ML
     Route: 055
  2. COVID?19 VACCINE [Concomitant]
     Dosage: UNK
     Dates: start: 202105, end: 202105

REACTIONS (7)
  - Respiratory tract congestion [Unknown]
  - Off label use [Unknown]
  - Ageusia [Unknown]
  - Dyspnoea [Unknown]
  - Product dose omission issue [Unknown]
  - Cough [Unknown]
  - Wheezing [Unknown]
